FAERS Safety Report 19213017 (Version 1)
Quarter: 2021Q2

REPORT INFORMATION
  Report Type: Spontaneous
  Country: US (occurrence: US)
  Receive Date: 20210504
  Receipt Date: 20210504
  Transmission Date: 20210717
  Serious: No
  Sender: FDA-Public Use
  Company Number: US-ROCHE-2584786

PATIENT
  Sex: Male
  Weight: 108.96 kg

DRUGS (1)
  1. AVASTIN [Suspect]
     Active Substance: BEVACIZUMAB
     Indication: HEPATIC CANCER
     Dosage: ONGOING:YES
     Route: 042
     Dates: start: 20200225

REACTIONS (3)
  - No adverse event [Unknown]
  - Off label use [Unknown]
  - Intentional product use issue [Unknown]
